FAERS Safety Report 18057005 (Version 1)
Quarter: 2020Q3

REPORT INFORMATION
  Report Type: Spontaneous
  Country: None (occurrence: US)
  Receive Date: 20200722
  Receipt Date: 20200722
  Transmission Date: 20201103
  Serious: No
  Sender: FDA-Public Use
  Company Number: US-VERITY PHARMACEUTICALS, INC.-2020VTY00118

PATIENT
  Sex: Female

DRUGS (3)
  1. KEPPRA [Concomitant]
     Active Substance: LEVETIRACETAM
  2. TRELSTAR [Suspect]
     Active Substance: TRIPTORELIN PAMOATE
     Indication: PRECOCIOUS PUBERTY
     Dosage: 22.5 MG, ONCE (SINGLE)
     Route: 030
  3. TRELSTAR [Suspect]
     Active Substance: TRIPTORELIN PAMOATE
     Dosage: 22.5 MG, ONCE (SINGLE)
     Route: 030
     Dates: start: 20180608, end: 20180608

REACTIONS (3)
  - Acne [Recovering/Resolving]
  - Hyperhidrosis [Recovering/Resolving]
  - Mood swings [Not Recovered/Not Resolved]

NARRATIVE: CASE EVENT DATE: 2018
